FAERS Safety Report 9147020 (Version 1)
Quarter: 2013Q1

REPORT INFORMATION
  Report Type: Spontaneous
  Country: IT (occurrence: IT)
  Receive Date: 20130307
  Receipt Date: 20130307
  Transmission Date: 20140127
  Serious: Yes (Other)
  Sender: FDA-Public Use
  Company Number: IT-ELI_LILLY_AND_COMPANY-IT201302010131

PATIENT
  Age: 85 Year
  Sex: Male

DRUGS (5)
  1. HUMALOG 50% LISPRO, 50% NPL [Suspect]
     Dosage: UNK UNK, UNKNOWN
     Route: 058
     Dates: start: 20120101, end: 20130131
  2. SOLOSA [Concomitant]
     Dosage: 2 MG, UNKNOWN
     Dates: start: 20120101, end: 20130131
  3. FOLINA [Concomitant]
     Dosage: 5 MG, UNKNOWN
  4. PURSENNID [Concomitant]
     Dosage: UNK, UNKNOWN
  5. SEROQUEL [Concomitant]
     Dosage: 25 MG, UNKNOWN

REACTIONS (3)
  - Hypoglycaemia [Recovering/Resolving]
  - Hyperglycaemia [Recovering/Resolving]
  - Hypertransaminasaemia [Recovering/Resolving]
